FAERS Safety Report 5421419-6 (Version None)
Quarter: 2007Q3

REPORT INFORMATION
  Report Type: 
  Country: None (occurrence: None)
  Receive Date: 20070821
  Receipt Date: 20070815
  Transmission Date: 20080115
  Serious: Yes (Hospitalization)
  Sender: FDA-Public Use
  Company Number: FI-BOEHRINGER INGELHEIM PHARMACEUTICALS, INC.-2007-SW-00303SF

PATIENT
  Age: 48 Year
  Sex: Female

DRUGS (3)
  1. SIFROL TAB. 0.18 MG [Suspect]
     Indication: RESTLESS LEGS SYNDROME
     Dates: start: 20070117, end: 20070701
  2. SIFROL TAB. 0.18 MG [Suspect]
     Dates: start: 20070701, end: 20070701
  3. IMOVANE [Concomitant]

REACTIONS (3)
  - DIZZINESS [None]
  - OVERDOSE [None]
  - SOMNOLENCE [None]
